FAERS Safety Report 6562525-2 (Version None)
Quarter: 2010Q1

REPORT INFORMATION
  Report Type: 
  Country: None (occurrence: None)
  Receive Date: 20100130
  Receipt Date: 20091221
  Transmission Date: 20100710
  Serious: No
  Sender: FDA-Public Use
  Company Number: US-ABBOTT-09P-163-0608393-00

PATIENT
  Sex: Female
  Weight: 60.836 kg

DRUGS (5)
  1. HUMIRA [Suspect]
     Indication: CROHN'S DISEASE
     Dates: start: 20091028, end: 20091028
  2. HUMIRA [Suspect]
     Dates: start: 20091106, end: 20091106
  3. HUMIRA [Suspect]
  4. PENTASA [Concomitant]
     Indication: CROHN'S DISEASE
  5. PROTONIX [Concomitant]
     Indication: HIATUS HERNIA

REACTIONS (2)
  - RASH PAPULAR [None]
  - RASH PRURITIC [None]
